FAERS Safety Report 9771864 (Version 3)
Quarter: 2014Q1

REPORT INFORMATION
  Report Type: Report from Study
  Country: CN (occurrence: CN)
  Receive Date: 20131219
  Receipt Date: 20140110
  Transmission Date: 20141002
  Serious: Yes (Other)
  Sender: FDA-Public Use
  Company Number: CN-ROCHE-1321395

PATIENT
  Age: 52 Year
  Sex: Male

DRUGS (1)
  1. ALTEPLASE [Suspect]
     Indication: BASAL GANGLIA INFARCTION
     Dosage: 6.5 MG AS INJECTION UNDER 1 MIN, THE REMAINING AS INTRAVENOUS DRIP OVER 1 HOUR (NR).
     Route: 042

REACTIONS (9)
  - Cerebrovascular disorder [Unknown]
  - Cerebral infarction [Unknown]
  - Dysphoria [Unknown]
  - Aphasia [Unknown]
  - Blood pressure increased [Unknown]
  - Heart rate increased [Unknown]
  - Oxygen saturation decreased [Unknown]
  - Dyspnoea [Unknown]
  - Glassy eyes [Unknown]
